FAERS Safety Report 15287933 (Version 2)
Quarter: 2019Q2

REPORT INFORMATION
  Report Type: Spontaneous
  Country: US (occurrence: US)
  Receive Date: 20180817
  Receipt Date: 20190422
  Transmission Date: 20190711
  Serious: No
  Sender: FDA-Public Use
  Company Number: US-PFIZER INC-2018331584

PATIENT
  Age: 63 Year
  Sex: Female

DRUGS (2)
  1. SUTENT [Suspect]
     Active Substance: SUNITINIB MALATE
     Indication: RENAL CANCER
     Dosage: 50 MG, UNK
  2. SUTENT [Suspect]
     Active Substance: SUNITINIB MALATE
     Dosage: 37.5 MG, CYCLIC,(1 CAPSULE BY MOUTH EVERY DAY FOR ONE WEEK ON, ONE WEEK OFF)
     Route: 048
     Dates: start: 201808

REACTIONS (12)
  - Insomnia [Recovered/Resolved]
  - Blood pressure increased [Unknown]
  - Vomiting [Unknown]
  - Diarrhoea [Unknown]
  - Hypoaesthesia [Recovered/Resolved]
  - Oral mucosal blistering [Unknown]
  - Gait disturbance [Recovered/Resolved]
  - Feeding disorder [Unknown]
  - Swelling face [Unknown]
  - Pain in extremity [Not Recovered/Not Resolved]
  - Headache [Unknown]
  - Tongue blistering [Unknown]
